FAERS Safety Report 25519398 (Version 1)
Quarter: 2025Q3

REPORT INFORMATION
  Report Type: Spontaneous
  Country: JP (occurrence: JP)
  Receive Date: 20250704
  Receipt Date: 20250704
  Transmission Date: 20251021
  Serious: Yes (Hospitalization)
  Sender: BAUSCH AND LOMB
  Company Number: JP-FERRINGPH-2025FE02795

PATIENT
  Age: 12 Year
  Sex: Male

DRUGS (2)
  1. BUDESONIDE [Suspect]
     Active Substance: BUDESONIDE
     Indication: Colitis ulcerative
     Route: 048
     Dates: start: 20250425
  2. PENTASA [Suspect]
     Active Substance: MESALAMINE
     Indication: Colitis ulcerative
     Dates: start: 20250425, end: 20250507

REACTIONS (6)
  - Haematochezia [Recovered/Resolved]
  - Pyrexia [Recovered/Resolved]
  - Arthralgia [Recovered/Resolved]
  - Diarrhoea [Recovered/Resolved]
  - Drug intolerance [Recovered/Resolved]
  - Product use issue [Unknown]

NARRATIVE: CASE EVENT DATE: 20250425
